FAERS Safety Report 20876404 (Version 1)
Quarter: 2022Q2

REPORT INFORMATION
  Report Type: Spontaneous
  Country: GB (occurrence: GB)
  Receive Date: 20220526
  Receipt Date: 20220526
  Transmission Date: 20220721
  Serious: Yes (Hospitalization)
  Sender: FDA-Public Use
  Company Number: GB-STRIDES ARCOLAB LIMITED-2022SP006079

PATIENT
  Age: 81 Year
  Sex: Female

DRUGS (19)
  1. PREDNISOLONE [Suspect]
     Active Substance: PREDNISOLONE
     Indication: Giant cell arteritis
     Dosage: 60 MILLIGRAM, PER DAY
     Route: 048
  2. PREDNISOLONE [Suspect]
     Active Substance: PREDNISOLONE
     Dosage: UNK, DOSE TAPERED
     Route: 065
  3. METHYLPREDNISOLONE [Suspect]
     Active Substance: METHYLPREDNISOLONE
     Indication: Giant cell arteritis
     Dosage: 1 GRAM, UNKNOWN
     Route: 042
  4. CHLORHEXIDINE [Concomitant]
     Active Substance: CHLORHEXIDINE
     Indication: Tongue necrosis
     Dosage: UNK
     Route: 065
  5. OXETACAINE [Concomitant]
     Active Substance: OXETHAZAINE
     Indication: Tongue necrosis
     Dosage: UNK
     Route: 065
  6. BENZYDAMINE [Concomitant]
     Active Substance: BENZYDAMINE
     Indication: Tongue necrosis
     Dosage: UNK
     Route: 065
  7. BENZYDAMINE [Concomitant]
     Active Substance: BENZYDAMINE
     Indication: Glossodynia
     Dosage: UNK
     Route: 048
  8. DIHYDROCODEINE [Concomitant]
     Active Substance: DIHYDROCODEINE
     Indication: Tongue necrosis
     Dosage: UNK
     Route: 065
  9. CHOLINE SALICYLATE [Concomitant]
     Active Substance: CHOLINE SALICYLATE
     Indication: Tongue necrosis
     Dosage: UNK
     Route: 065
  10. PENICILLIN V [Concomitant]
     Active Substance: PENICILLIN V
     Indication: Glossodynia
     Dosage: UNK
     Route: 048
  11. PENICILLIN V [Concomitant]
     Active Substance: PENICILLIN V
     Indication: Oropharyngeal pain
  12. NYSTATIN [Concomitant]
     Active Substance: NYSTATIN
     Indication: Oral candidiasis
     Dosage: UNK
     Route: 048
  13. OMEPRAZOLE [Concomitant]
     Active Substance: OMEPRAZOLE
     Indication: Product used for unknown indication
     Dosage: UNK
     Route: 065
  14. DENOSUMAB [Concomitant]
     Active Substance: DENOSUMAB
     Indication: Product used for unknown indication
     Dosage: UNK
     Route: 065
  15. ACETAMINOPHEN [Concomitant]
     Active Substance: ACETAMINOPHEN
     Indication: Pain
     Dosage: UNK
     Route: 065
  16. ACETAMINOPHEN [Concomitant]
     Active Substance: ACETAMINOPHEN
     Dosage: UNK,PREVIOUSLY TAKEN
     Route: 065
  17. RAMIPRIL [Concomitant]
     Active Substance: RAMIPRIL
     Indication: Hypertension
     Dosage: UNK
     Route: 065
  18. MORPHINE SULFATE [Concomitant]
     Active Substance: MORPHINE SULFATE
     Indication: Pain
     Dosage: UNK
     Route: 065
  19. FLUCONAZOLE [Concomitant]
     Active Substance: FLUCONAZOLE
     Indication: Candida infection
     Dosage: UNK
     Route: 048

REACTIONS (2)
  - Cerebellar stroke [Recovered/Resolved]
  - Ischaemic stroke [Recovered/Resolved]
